FAERS Safety Report 14120549 (Version 2)
Quarter: 2017Q4

REPORT INFORMATION
  Report Type: Other
  Country: US (occurrence: US)
  Receive Date: 20171024
  Receipt Date: 20171031
  Transmission Date: 20180321
  Serious: Yes (Death, Other)
  Sender: FDA-Public Use
  Company Number: US-INTERCEPT-PMOCA2017001150

PATIENT

DRUGS (3)
  1. VITAMIN E                          /00110501/ [Concomitant]
     Active Substance: TOCOPHEROL
  2. ZYRTEC [Concomitant]
     Active Substance: CETIRIZINE HYDROCHLORIDE
  3. OCALIVA [Suspect]
     Active Substance: OBETICHOLIC ACID
     Indication: BILIARY CIRRHOSIS PRIMARY
     Dosage: 5 MG, QW
     Route: 048
     Dates: start: 2016, end: 2017

REACTIONS (5)
  - Pruritus [Unknown]
  - Fall [Fatal]
  - Mobility decreased [Unknown]
  - Hepatic function abnormal [Unknown]
  - Asthenia [Unknown]
